FAERS Safety Report 5715185-4 (Version None)
Quarter: 2008Q2

REPORT INFORMATION
  Report Type: 
  Country: None (occurrence: None)
  Receive Date: 20080423
  Receipt Date: 20080414
  Transmission Date: 20081010
  Serious: Yes (Other)
  Sender: FDA-Public Use
  Company Number: JP-PFIZER INC-2008032738

PATIENT
  Age: 51 Year
  Sex: Male

DRUGS (6)
  1. LIPITOR [Suspect]
     Indication: HYPERCHOLESTEROLAEMIA
     Dosage: DAILY DOSE:20MG
     Route: 048
     Dates: start: 20070804, end: 20080403
  2. NORVASC [Suspect]
     Route: 048
  3. BUFFERIN [Suspect]
     Route: 048
  4. LANSOPRAZOLE [Suspect]
     Route: 048
  5. FLUTIDE [Suspect]
  6. MEPTIN [Suspect]

REACTIONS (1)
  - ALTERED STATE OF CONSCIOUSNESS [None]
